FAERS Safety Report 5202349-1 (Version None)
Quarter: 2007Q1

REPORT INFORMATION
  Report Type: 
  Country: None (occurrence: None)
  Receive Date: 20070109
  Receipt Date: 20061227
  Transmission Date: 20070707
  Serious: Yes (Hospitalization)
  Sender: FDA-Public Use
  Company Number: GB-MERCK-0701USA00585

PATIENT
  Age: 79 Year
  Sex: Male

DRUGS (11)
  1. ZESTRIL [Suspect]
     Route: 048
     Dates: end: 20061130
  2. HYDRODIURIL [Suspect]
     Route: 048
     Dates: end: 20061130
  3. AMLODIPINE BESYLATE [Concomitant]
     Route: 048
  4. ASPIRIN [Concomitant]
     Route: 048
  5. ATORVASTATIN CALCIUM [Concomitant]
     Route: 048
  6. FERROUS SULFATE [Concomitant]
     Route: 048
  7. LEVEMIR [Concomitant]
     Route: 058
  8. METFORMIN [Concomitant]
     Route: 048
  9. NOVORAPID [Concomitant]
     Route: 058
  10. PARACETAMOL TABLETS BP [Concomitant]
     Route: 048
  11. VITAMINS (UNSPECIFIED) [Concomitant]
     Route: 065

REACTIONS (1)
  - HYPERKALAEMIA [None]
